FAERS Safety Report 5739463-8 (Version None)
Quarter: 2008Q2

REPORT INFORMATION
  Report Type: 
  Country: None (occurrence: None)
  Receive Date: 20080515
  Receipt Date: 20080505
  Transmission Date: 20081010
  Serious: Yes (Other)
  Sender: FDA-Public Use
  Company Number: IN-PFIZER INC-2008040198

PATIENT
  Age: 75 Year
  Sex: Female

DRUGS (4)
  1. MINIPRESS XL [Suspect]
     Indication: HYPERTENSION
     Dosage: TEXT:2.5 MG O.D. EVERYDAY TDD:2.5 MG
     Route: 048
  2. CARDACE [Concomitant]
     Route: 048
  3. NIFEDIPINE [Concomitant]
     Route: 048
  4. DITIDE [Concomitant]
     Route: 048

REACTIONS (2)
  - BLOOD PRESSURE FLUCTUATION [None]
  - HEART RATE DECREASED [None]
